FAERS Safety Report 17036194 (Version 1)
Quarter: 2019Q4

REPORT INFORMATION
  Report Type: Spontaneous
  Country: US (occurrence: US)
  Receive Date: 20191115
  Receipt Date: 20191115
  Transmission Date: 20200122
  Serious: No
  Sender: FDA-Public Use
  Company Number: US-TEVA-2019-US-1137851

PATIENT
  Sex: Female

DRUGS (1)
  1. ALPRAZOLAM 0.5 MG [Suspect]
     Active Substance: ALPRAZOLAM

REACTIONS (1)
  - Malaise [Unknown]
